FAERS Safety Report 23962245 (Version 2)
Quarter: 2024Q3

REPORT INFORMATION
  Report Type: Report from Study
  Country: CN (occurrence: CN)
  Receive Date: 20240611
  Receipt Date: 20240828
  Transmission Date: 20241017
  Serious: Yes (Hospitalization, Other)
  Sender: RANBAXY
  Company Number: CN-SUN PHARMACEUTICAL INDUSTRIES LTD-2024R1-450319

PATIENT
  Age: 75 Year
  Sex: Female
  Weight: 37 kg

DRUGS (5)
  1. SONIDEGIB [Suspect]
     Active Substance: SONIDEGIB
     Indication: Basal cell carcinoma
     Dosage: 200 MILLIGRAM, QD
     Route: 048
     Dates: start: 20230814, end: 20231204
  2. SONIDEGIB [Suspect]
     Active Substance: SONIDEGIB
     Dosage: 200 MILLIGRAM, QD
     Route: 048
     Dates: start: 20240103, end: 20240423
  3. Sheng xue bao granules [Concomitant]
     Indication: Iron deficiency anaemia
     Dosage: 8 GRAM, BID
     Route: 048
     Dates: start: 20231204, end: 20240527
  4. FERROUS SUCCINATE [Concomitant]
     Active Substance: FERROUS SUCCINATE
     Indication: Iron deficiency anaemia
     Dosage: 0.2 GRAM, BID
     Route: 048
     Dates: start: 20231214, end: 20240326
  5. FERROUS SUCCINATE [Concomitant]
     Active Substance: FERROUS SUCCINATE
     Dosage: 0.1 GRAM, TID
     Route: 048
     Dates: start: 20240326, end: 20240527

REACTIONS (2)
  - Colon cancer [Not Recovered/Not Resolved]
  - Iron deficiency anaemia [Not Recovered/Not Resolved]

NARRATIVE: CASE EVENT DATE: 20240520
